FAERS Safety Report 5057072-3 (Version None)
Quarter: 2006Q3

REPORT INFORMATION
  Report Type: 
  Country: None (occurrence: None)
  Receive Date: 20060718
  Receipt Date: 20060703
  Transmission Date: 20061208
  Serious: Yes (Hospitalization)
  Sender: FDA-Public Use
  Company Number: WAES 0607USA00148

PATIENT
  Age: 59 Year
  Sex: Male

DRUGS (21)
  1. MK-0869 (APREPITANT) [Suspect]
     Indication: PROPHYLAXIS OF NAUSEA AND VOMITING
     Dosage: 40 MG/1X PO; 25 MG/DAILY PO
     Route: 048
     Dates: start: 20060622, end: 20060622
  2. MK-0869 (APREPITANT) [Suspect]
     Indication: PROPHYLAXIS OF NAUSEA AND VOMITING
     Dosage: 40 MG/1X PO; 25 MG/DAILY PO
     Route: 048
     Dates: start: 20060623, end: 20060626
  3. CARVEDILOL [Suspect]
     Dosage: 10 MG DAILY
     Dates: end: 20060630
  4. ACTOS [Concomitant]
  5. CATLEP [Concomitant]
  6. CISPLATIN [Concomitant]
  7. EURODIN [Concomitant]
  8. GASTER [Concomitant]
  9. LACTEC [Concomitant]
  10. LIPITOR [Concomitant]
  11. MG OXIDE [Concomitant]
  12. PRORENAL [Concomitant]
  13. SELBEX [Concomitant]
  14. SOLITA T-1 [Concomitant]
  15. SOLITA T-3 [Concomitant]
  16. DEXAMETHASONE [Concomitant]
  17. GEMCITABINE [Concomitant]
  18. GRANISETRON HCL [Concomitant]
  19. SENNOSIDES [Concomitant]
  20. WARFARIN SODIUM [Concomitant]
  21. ZOLPIDEM TARTRATE [Concomitant]

REACTIONS (15)
  - ALOPECIA [None]
  - BACK PAIN [None]
  - CONSTIPATION [None]
  - CONTUSION [None]
  - DEHYDRATION [None]
  - DERMATITIS CONTACT [None]
  - FALL [None]
  - FATIGUE [None]
  - HYPOTENSION [None]
  - INSOMNIA [None]
  - MUSCULOSKELETAL STIFFNESS [None]
  - SINUS BRADYCARDIA [None]
  - STOMACH DISCOMFORT [None]
  - SYNCOPE [None]
  - URINARY INCONTINENCE [None]
